FAERS Safety Report 14128460 (Version 6)
Quarter: 2019Q1

REPORT INFORMATION
  Report Type: Spontaneous
  Country: US (occurrence: US)
  Receive Date: 20171026
  Receipt Date: 20190206
  Transmission Date: 20190417
  Serious: Yes (Other)
  Sender: FDA-Public Use
  Company Number: US-PFIZER INC-2017294202

PATIENT
  Age: 76 Year
  Sex: Female
  Weight: 67.13 kg

DRUGS (20)
  1. MELATONIN [Concomitant]
     Active Substance: MELATONIN
     Indication: INSOMNIA
     Dosage: 10 MG AT NIGHT, DAILY
     Route: 048
     Dates: start: 201705
  2. FULVESTRANT. [Concomitant]
     Active Substance: FULVESTRANT
     Indication: NEOPLASM MALIGNANT
     Dosage: UNK, MONTHLY
     Route: 030
  3. MACROGOL 400 [Concomitant]
     Active Substance: POLYETHYLENE GLYCOL 400
     Dosage: UNK
  4. IBRANCE [Suspect]
     Active Substance: PALBOCICLIB
     Indication: BREAST CANCER STAGE IV
     Dosage: 100 MG, ONCE A DAY
     Route: 048
     Dates: start: 201607, end: 20170915
  5. SIMVASTATIN. [Concomitant]
     Active Substance: SIMVASTATIN
     Indication: BLOOD CHOLESTEROL ABNORMAL
     Dosage: 20 MG, ONCE A DAY (AT NIGHT)
     Route: 048
  6. SIMVASTATIN. [Concomitant]
     Active Substance: SIMVASTATIN
     Indication: DIABETES MELLITUS
  7. SIMVASTATIN. [Concomitant]
     Active Substance: SIMVASTATIN
     Indication: HYPERCOAGULATION
  8. CALCIUM [Concomitant]
     Active Substance: CALCIUM
     Indication: OSTEOPOROSIS
     Dosage: UNK, (ONCE OR TWICE A DAY)
  9. OXYCODONE [Concomitant]
     Active Substance: OXYCODONE
     Indication: ANXIETY
     Dosage: 1 MG, ONCE DAILY (0.5 MG AND TAKE TWO ONCE A DAY AT BEDTIME)
  10. ASPIRIN 81 [Concomitant]
     Active Substance: ASPIRIN
     Indication: CARDIAC DISORDER
     Dosage: 81 MG, ONCE A DAY
  11. CENTRUM MULTIGUMMIES [Concomitant]
     Active Substance: MINERALS\VITAMINS
     Indication: SUPPLEMENTATION THERAPY
     Dosage: ONE TABLET, ONCE OR TWICE A DAY
     Route: 048
     Dates: start: 2015
  12. ADVIL PM [Concomitant]
     Active Substance: DIPHENHYDRAMINE CITRATE\IBUPROFEN
     Indication: ARTHRITIS
     Dosage: 2 DF AT NIGHT, DAILY
     Route: 048
  13. ASPIRIN 81 [Concomitant]
     Active Substance: ASPIRIN
     Indication: PAIN
  14. LORAZEPAM. [Suspect]
     Active Substance: LORAZEPAM
     Indication: ANXIETY
     Dosage: 20 MG, AS NEEDED
  15. LORAZEPAM. [Suspect]
     Active Substance: LORAZEPAM
     Dosage: 0.5 MG, ONCE A DAY (AT NIGHT)
     Route: 048
  16. SYSTANE (HYPROMELLOSE 2910 (4000 MPA.S)) [Concomitant]
     Active Substance: HYPROMELLOSE 2910 (4000 MPA.S)
     Indication: DRY EYE
     Dosage: UNK, AS NEEDED
  17. COLACE [Concomitant]
     Active Substance: DOCUSATE SODIUM
     Indication: LAXATIVE SUPPORTIVE CARE
     Dosage: UNK, (ONCE OR TWICE A DAY)
  18. AMPICILLIN [Concomitant]
     Active Substance: AMPICILLIN
     Dosage: UNK
  19. IBRANCE [Suspect]
     Active Substance: PALBOCICLIB
     Dosage: 100 MG, CYCLIC, (ONCE PER DAY FOR 21 DAYS THEN 7 DAYS OFF)
     Route: 048
  20. TYLENOL [Suspect]
     Active Substance: ACETAMINOPHEN
     Indication: ANXIETY
     Dosage: 625 MG, UNK
     Route: 048

REACTIONS (5)
  - Nasopharyngitis [Not Recovered/Not Resolved]
  - Pain [Unknown]
  - Insomnia [Unknown]
  - Foot deformity [Unknown]
  - Visual impairment [Unknown]

NARRATIVE: CASE EVENT DATE: 20171209
